FAERS Safety Report 17843461 (Version 1)
Quarter: 2020Q2

REPORT INFORMATION
  Report Type: Spontaneous
  Country: CA (occurrence: CA)
  Receive Date: 20200530
  Receipt Date: 20200530
  Transmission Date: 20200714
  Serious: Yes (Other)
  Sender: FDA-Public Use
  Company Number: CA-ROCHE-2606906

PATIENT
  Sex: Female

DRUGS (9)
  1. ACTEMRA [Suspect]
     Active Substance: TOCILIZUMAB
     Indication: RHEUMATOID ARTHRITIS
     Dosage: THERAPY DURATION: 335.0 DAYS
     Route: 042
  2. DICLOFENAC [Suspect]
     Active Substance: DICLOFENAC
     Indication: RHEUMATOID ARTHRITIS
     Route: 065
  3. PREGABALIN. [Suspect]
     Active Substance: PREGABALIN
     Indication: PRODUCT USED FOR UNKNOWN INDICATION
     Route: 065
  4. XELJANZ [Suspect]
     Active Substance: TOFACITINIB CITRATE
     Indication: PRODUCT USED FOR UNKNOWN INDICATION
     Dosage: THERAPY DURATION: 152.0 DAYS
     Route: 065
  5. METHOTREXATE. [Suspect]
     Active Substance: METHOTREXATE
     Indication: RHEUMATOID ARTHRITIS
     Route: 065
  6. HUMIRA [Suspect]
     Active Substance: ADALIMUMAB
     Indication: RHEUMATOID ARTHRITIS
     Route: 058
  7. RITUXIMAB. [Suspect]
     Active Substance: RITUXIMAB
     Indication: RHEUMATOID ARTHRITIS
     Dosage: THERAPY DURATION: 305.0 DAYS
     Route: 041
  8. GOLD [Suspect]
     Active Substance: GOLD
     Indication: RHEUMATOID ARTHRITIS
     Route: 065
  9. ORENCIA [Suspect]
     Active Substance: ABATACEPT
     Indication: RHEUMATOID ARTHRITIS
     Dosage: THERAPY DURATION: 244.0 DAYS
     Route: 058

REACTIONS (7)
  - Drug ineffective [Unknown]
  - Herpes zoster [Not Recovered/Not Resolved]
  - Infection [Not Recovered/Not Resolved]
  - Rash [Not Recovered/Not Resolved]
  - Rheumatoid arthritis [Not Recovered/Not Resolved]
  - Skin lesion [Not Recovered/Not Resolved]
  - Sleep disorder [Not Recovered/Not Resolved]
